FAERS Safety Report 7594016-4 (Version None)
Quarter: 2011Q3

REPORT INFORMATION
  Report Type: 
  Country: None (occurrence: None)
  Receive Date: 20110706
  Receipt Date: 20110630
  Transmission Date: 20111222
  Serious: Yes (Other)
  Sender: FDA-Public Use
  Company Number: US-PFIZER INC-2010006447

PATIENT
  Sex: Male

DRUGS (9)
  1. CHANTIX [Suspect]
     Dosage: STARTER PACK/ 1 MG
     Dates: start: 20080818, end: 20080901
  2. LISINOPRIL [Concomitant]
     Indication: HYPERTENSION
     Dosage: UNK
     Dates: start: 20040412, end: 20071001
  3. METFORMIN [Concomitant]
     Indication: DIABETES MELLITUS
     Dosage: UNK
     Dates: start: 20070807
  4. CHANTIX [Suspect]
     Indication: SMOKING CESSATION THERAPY
     Dosage: STARTER PACK/ 1 MG
     Dates: start: 20070525, end: 20070101
  5. AZITHROMYCIN [Concomitant]
     Indication: BRONCHITIS
     Dosage: UNK
     Dates: start: 20021106, end: 20071107
  6. MUPIROCIN [Concomitant]
     Indication: SKIN INFECTION
     Dosage: UNK
     Dates: start: 20060521, end: 20081209
  7. GLYBURIDE [Concomitant]
     Indication: DIABETES MELLITUS
     Dosage: UNK
     Dates: start: 20070807
  8. PROTONIX [Concomitant]
     Indication: GASTROOESOPHAGEAL REFLUX DISEASE
     Dosage: UNK
     Dates: start: 20041112
  9. TRIAMCINOLONE [Concomitant]
     Indication: ECZEMA
     Dosage: UNK
     Dates: start: 20060601, end: 20071101

REACTIONS (6)
  - SUICIDAL IDEATION [None]
  - BLOOD GLUCOSE INCREASED [None]
  - AGGRESSION [None]
  - DEPRESSION [None]
  - INSOMNIA [None]
  - ABNORMAL BEHAVIOUR [None]
